FAERS Safety Report 11463857 (Version 1)
Quarter: 2015Q3

REPORT INFORMATION
  Report Type: Spontaneous
  Country: US (occurrence: US)
  Receive Date: 20150831
  Receipt Date: 20150831
  Transmission Date: 20151125
  Serious: Yes (Other)
  Sender: FDA-Public Use
  Company Number: US-ELI_LILLY_AND_COMPANY-US201104001561

PATIENT
  Age: 52 Year
  Sex: Female
  Weight: 89.8 kg

DRUGS (4)
  1. CYMBALTA [Suspect]
     Active Substance: DULOXETINE HYDROCHLORIDE
     Indication: COMPLEX REGIONAL PAIN SYNDROME
     Dosage: 60 MG, QD
     Route: 048
  2. KETAMINE [Concomitant]
     Active Substance: KETAMINE
     Dosage: UNK, UNKNOWN
  3. KADIAN [Concomitant]
     Active Substance: MORPHINE SULFATE
     Dosage: UNK, UNKNOWN
  4. CYMBALTA [Suspect]
     Active Substance: DULOXETINE HYDROCHLORIDE
     Dosage: 90 MG, QD
     Route: 048
     Dates: start: 20110208, end: 20110322

REACTIONS (4)
  - Depression [Unknown]
  - Off label use [Recovered/Resolved]
  - Suicidal ideation [Recovered/Resolved]
  - Pain [Unknown]
